FAERS Safety Report 18361014 (Version 1)
Quarter: 2020Q4

REPORT INFORMATION
  Report Type: Spontaneous
  Country: GB (occurrence: GB)
  Receive Date: 20201008
  Receipt Date: 20201008
  Transmission Date: 20210114
  Serious: Yes (Other)
  Sender: FDA-Public Use
  Company Number: GB-GLAXOSMITHKLINE-GB2020EME197712

PATIENT

DRUGS (1)
  1. BUPROPION SR [Suspect]
     Active Substance: BUPROPION HYDROCHLORIDE
     Indication: DEPRESSION
     Dosage: UNK, 150 MG

REACTIONS (11)
  - Drug withdrawal syndrome [Unknown]
  - Hyperhidrosis [Unknown]
  - Product use in unapproved indication [Unknown]
  - Drug dependence [Unknown]
  - Headache [Unknown]
  - Incorrect dose administered [Unknown]
  - Social problem [Unknown]
  - Product prescribing issue [Unknown]
  - Fatigue [Unknown]
  - Nausea [Unknown]
  - Affect lability [Unknown]
